APPROVED DRUG PRODUCT: PROCAINAMIDE HYDROCHLORIDE
Active Ingredient: PROCAINAMIDE HYDROCHLORIDE
Strength: 500MG/ML
Dosage Form/Route: INJECTABLE;INJECTION
Application: A089030 | Product #001
Applicant: WEST-WARD PHARMACEUTICALS INTERNATIONAL LTD
Approved: Apr 17, 1986 | RLD: No | RS: No | Type: DISCN